FAERS Safety Report 9171254 (Version 2)
Quarter: 2013Q2

REPORT INFORMATION
  Report Type: Spontaneous
  Country: US (occurrence: US)
  Receive Date: 20130319
  Receipt Date: 20130509
  Transmission Date: 20140414
  Serious: Yes (Hospitalization)
  Sender: FDA-Public Use
  Company Number: US-BRISTOL-MYERS SQUIBB COMPANY-17462862

PATIENT
  Age: 71 Year
  Sex: Female

DRUGS (12)
  1. REYATAZ [Suspect]
     Indication: HIV INFECTION
  2. RITONAVIR [Suspect]
     Indication: HIV INFECTION
  3. TRUVADA [Suspect]
     Indication: HIV INFECTION
  4. ALBUTEROL [Concomitant]
     Dosage: INHALER
  5. ASPIRIN [Concomitant]
  6. DAPSONE [Concomitant]
     Indication: HIV INFECTION
     Route: 048
  7. FOLIC ACID [Concomitant]
  8. PRILOSEC [Concomitant]
     Dosage: 12 HOURS APART FROM REYATAZ
  9. OXYCODONE [Concomitant]
     Indication: PAIN
  10. PRAVASTATIN SODIUM [Concomitant]
  11. VESICARE [Concomitant]
  12. OMEPRAZOLE [Concomitant]
     Route: 048

REACTIONS (2)
  - Embolic stroke [Recovered/Resolved]
  - Arthropathy [Unknown]
